FAERS Safety Report 6130464-7 (Version None)
Quarter: 2009Q1

REPORT INFORMATION
  Report Type: 
  Country: None (occurrence: None)
  Receive Date: 20090324
  Receipt Date: 20090310
  Transmission Date: 20090719
  Serious: Yes (Death)
  Sender: FDA-Public Use
  Company Number: NI-ROCHE-615994

PATIENT
  Age: 57 Year
  Sex: Male

DRUGS (2)
  1. PEGASYS [Suspect]
     Indication: HEPATITIS C
     Dosage: OTHER INDICATION : COMPENSATED CIRROHSIS
     Route: 058
     Dates: start: 20090127, end: 20090210
  2. COPEGUS [Concomitant]

REACTIONS (4)
  - ACUTE HEPATIC FAILURE [None]
  - HEPATIC ENCEPHALOPATHY [None]
  - HEPATOPULMONARY SYNDROME [None]
  - HEPATORENAL SYNDROME [None]
